FAERS Safety Report 5670073-7 (Version None)
Quarter: 2008Q1

REPORT INFORMATION
  Report Type: 
  Country: None (occurrence: None)
  Receive Date: 20080312
  Receipt Date: 20080227
  Transmission Date: 20080703
  Serious: Yes (Hospitalization)
  Sender: FDA-Public Use
  Company Number: A-JP2008-19055

PATIENT
  Age: 64 Year
  Sex: Female
  Weight: 47 kg

DRUGS (3)
  1. TRACLEER [Suspect]
     Indication: PULMONARY HYPERTENSION
     Dosage: 125 MG,BID,ORAL
     Route: 048
  2. MOSAPRIDE CITRATE (MOSAPRIDE CITRATE) [Concomitant]
  3. CHINESE MEDICINE [Concomitant]

REACTIONS (2)
  - HAEMOLYTIC ANAEMIA [None]
  - HEPATIC CONGESTION [None]
